FAERS Safety Report 9773653 (Version 2)
Quarter: 2014Q1

REPORT INFORMATION
  Report Type: Spontaneous
  Country: CO (occurrence: None)
  Receive Date: 20131218
  Receipt Date: 20140210
  Transmission Date: 20141002
  Serious: Yes (Other)
  Sender: FDA-Public Use
  Company Number: SYM-2013-14047

PATIENT
  Age: 47 Year
  Sex: Male

DRUGS (1)
  1. WELLBUTRIN [Suspect]
     Indication: DEPRESSION
     Dosage: 300 MG, ORAL
     Route: 048
     Dates: start: 201310

REACTIONS (2)
  - Parasomnia [None]
  - Feeling abnormal [None]
